FAERS Safety Report 16857790 (Version 2)
Quarter: 2019Q4

REPORT INFORMATION
  Report Type: Spontaneous
  Country: DE (occurrence: DE)
  Receive Date: 20190926
  Receipt Date: 20191029
  Transmission Date: 20200122
  Serious: Yes (Hospitalization)
  Sender: FDA-Public Use
  Company Number: DE-JNJFOC-20190927894

PATIENT
  Age: 7 Decade
  Sex: Male
  Weight: 86 kg

DRUGS (2)
  1. REMICADE [Suspect]
     Active Substance: INFLIXIMAB
     Indication: COLITIS ULCERATIVE
     Route: 042
     Dates: start: 20080807
  2. REMICADE [Suspect]
     Active Substance: INFLIXIMAB
     Route: 042
     Dates: end: 20190703

REACTIONS (3)
  - Off label use [Unknown]
  - Product use issue [Unknown]
  - Prostate cancer [Recovered/Resolved]

NARRATIVE: CASE EVENT DATE: 20190715
